FAERS Safety Report 5066423-5 (Version None)
Quarter: 2006Q3

REPORT INFORMATION
  Report Type: 
  Country: None (occurrence: None)
  Receive Date: 20060717
  Receipt Date: 20050421
  Transmission Date: 20061208
  Serious: Yes (Hospitalization)
  Sender: FDA-Public Use
  Company Number: SGB1-2005-00191

PATIENT
  Age: 74 Year
  Sex: Male
  Weight: 86 kg

DRUGS (5)
  1. XAGRID 0.5MG (ANAGRELIDE HYDROCHLORIDE) CAPSULE [Suspect]
     Indication: THROMBOCYTHAEMIA
     Dosage: 1 MG, 1X/DAY:QD, ORAL
     Route: 048
     Dates: start: 20050203, end: 20050413
  2. FUROSEMIDE [Concomitant]
  3. ALLOPURINOL [Concomitant]
  4. HYDROXYCARBAMIDE (HYDROXYCARBAMIDE) [Concomitant]
  5. IPRATROPIUM/SALBUTEROL [Concomitant]

REACTIONS (1)
  - CARDIAC FAILURE [None]
